FAERS Safety Report 23444321 (Version 1)
Quarter: 2024Q1

REPORT INFORMATION
  Report Type: Spontaneous
  Country: CN (occurrence: CN)
  Receive Date: 20240125
  Receipt Date: 20240125
  Transmission Date: 20240410
  Serious: Yes (Other)
  Sender: FDA-Public Use
  Company Number: CN-FreseniusKabi-FK202401035

PATIENT
  Age: 24 Year
  Sex: Female
  Weight: 80 kg

DRUGS (2)
  1. PROPOFOL [Suspect]
     Active Substance: PROPOFOL
     Indication: Endoscopy gastrointestinal
     Dosage: FORM OF ADMIN: INJECTION
     Route: 042
     Dates: start: 20231230, end: 20231230
  2. REMIFENTANIL [Concomitant]
     Active Substance: REMIFENTANIL

REACTIONS (2)
  - Opisthotonus [Recovered/Resolved]
  - Tic [Recovered/Resolved]

NARRATIVE: CASE EVENT DATE: 20231230
